FAERS Safety Report 8555595-3 (Version None)
Quarter: 2012Q3

REPORT INFORMATION
  Report Type: 
  Country: None (occurrence: None)
  Receive Date: 20120731
  Receipt Date: 20111115
  Transmission Date: 20120928
  Serious: Yes (Other)
  Sender: FDA-Public Use
  Company Number: US-ASTRAZENECA-2010SE22150

PATIENT
  Age: 51 Year
  Sex: Female
  Weight: 68 kg

DRUGS (7)
  1. PREVACID [Concomitant]
     Indication: GASTROOESOPHAGEAL REFLUX DISEASE
  2. ATIVAN [Concomitant]
     Dosage: PRN
  3. SEROQUEL [Suspect]
     Indication: BIPOLAR DISORDER
     Route: 048
  4. SEROQUEL [Suspect]
     Dosage: 300 MG (2 TAB) TOTAL 600MG IN AM AND 300 MG (3 TAB) AT BEDTIME TOTAL 1500 MG
     Route: 048
  5. SEROQUEL [Suspect]
     Route: 048
  6. SEROQUEL [Suspect]
     Route: 048
  7. SEROQUEL [Suspect]
     Dosage: EXTRA 300 MG SOMETIMES BETWEEN ONE AND TWO PM
     Route: 048

REACTIONS (5)
  - CONVULSION [None]
  - THERAPEUTIC RESPONSE UNEXPECTED [None]
  - TREMOR [None]
  - STRESS [None]
  - DRUG DOSE OMISSION [None]
